FAERS Safety Report 9407950 (Version 1)
Quarter: 2013Q3

REPORT INFORMATION
  Report Type: Spontaneous
  Country: GB (occurrence: GB)
  Receive Date: 20130718
  Receipt Date: 20130718
  Transmission Date: 20140515
  Serious: Yes (Other)
  Sender: FDA-Public Use
  Company Number: GB-MERCK-1307GBR007356

PATIENT
  Age: 50 Year
  Sex: Female
  Weight: 87.99 kg

DRUGS (2)
  1. LOSARTAN POTASSIUM (+) HYDROCHLOROTHIAZIDE [Suspect]
     Dosage: UNK
     Route: 048
     Dates: start: 20130603, end: 20130701
  2. AMLODIPINE [Concomitant]
     Dosage: UNK
     Dates: start: 20130701

REACTIONS (1)
  - Glomerular filtration rate decreased [Unknown]
